FAERS Safety Report 7637776-6 (Version None)
Quarter: 2011Q3

REPORT INFORMATION
  Report Type: 
  Country: None (occurrence: None)
  Receive Date: 20110727
  Receipt Date: 20110718
  Transmission Date: 20111222
  Serious: Yes (Hospitalization, Other)
  Sender: FDA-Public Use
  Company Number: US-CELGENEUS-163-21880-11071988

PATIENT
  Sex: Female
  Weight: 97.7 kg

DRUGS (17)
  1. PLAVIX [Concomitant]
     Dosage: 75 MILLIGRAM
     Route: 048
  2. PERIDEX [Concomitant]
     Dosage: 200 MILLIGRAM
     Route: 048
  3. ADVAIR DISKUS 100/50 [Concomitant]
     Dosage: 250/50
     Route: 055
  4. METOPROLOL TARTRATE [Concomitant]
     Dosage: 25 MILLIGRAM
     Route: 048
  5. XANAX [Concomitant]
     Dosage: 4 MILLIGRAM
     Route: 048
  6. SINGULAIR [Concomitant]
     Dosage: 10 MILLIGRAM
     Route: 048
  7. PROZAC [Concomitant]
     Dosage: 80 MILLIGRAM
     Route: 048
  8. REVLIMID [Suspect]
     Indication: MULTIPLE MYELOMA
     Dosage: 25 MILLIGRAM
     Route: 048
     Dates: start: 20110622
  9. TRAZODONE HCL [Concomitant]
     Dosage: 300 MILLIGRAM
     Route: 048
  10. VITAMIN D [Concomitant]
     Dosage: 2000 IU (INTERNATIONAL UNIT)
     Route: 048
  11. COQ10 [Concomitant]
     Dosage: 100 GRAM
     Route: 048
  12. RANEXA [Concomitant]
     Dosage: 1000 MILLIGRAM
     Route: 048
  13. FISH OIL [Concomitant]
     Dosage: 2000 MILLIGRAM
     Route: 048
  14. LEVOTHYROXINE SODIUM [Concomitant]
     Dosage: 112 MILLIGRAM
     Route: 048
  15. CRESTOR [Concomitant]
     Dosage: 10 MILLIGRAM
     Route: 048
  16. SENNA LAX [Concomitant]
     Dosage: 17.2 MILLIGRAM
     Route: 048
  17. DEXAMETHASONE [Suspect]
     Indication: MULTIPLE MYELOMA
     Dosage: 40 MILLIGRAM
     Route: 048
     Dates: start: 20110622

REACTIONS (5)
  - ASTHENIA [None]
  - NEUTROPENIA [None]
  - ELECTROCARDIOGRAM QT PROLONGED [None]
  - DYSPNOEA [None]
  - NAUSEA [None]
